FAERS Safety Report 15149349 (Version 4)
Quarter: 2019Q3

REPORT INFORMATION
  Report Type: Report from Study
  Country: CA (occurrence: CA)
  Receive Date: 20180716
  Receipt Date: 20190906
  Transmission Date: 20191004
  Serious: Yes (Hospitalization, Other)
  Sender: FDA-Public Use
  Company Number: CA-GLAXOSMITHKLINE-CA2018GSK124615

PATIENT
  Sex: Male

DRUGS (13)
  1. COMBIVENT [Suspect]
     Active Substance: ALBUTEROL SULFATE\IPRATROPIUM BROMIDE
     Indication: PRODUCT USED FOR UNKNOWN INDICATION
     Dosage: UNK UNK, PRN
  2. DUAKLIR [Suspect]
     Active Substance: ACLIDINIUM BROMIDE\FORMOTEROL FUMARATE
     Indication: PRODUCT USED FOR UNKNOWN INDICATION
     Dosage: 1 PUFF(S), BID
     Route: 055
  3. FLUTICASONE FUROATE [Suspect]
     Active Substance: FLUTICASONE FUROATE
     Indication: PRODUCT USED FOR UNKNOWN INDICATION
     Dosage: 500 UG, BID
     Route: 055
  4. MEPOLIZUMAB [Suspect]
     Active Substance: MEPOLIZUMAB
     Indication: ASTHMA
     Dosage: 100 MG, Z
     Route: 042
  5. ANORO ELLIPTA [Suspect]
     Active Substance: UMECLIDINIUM BROMIDE\VILANTEROL TRIFENATATE
     Indication: ASTHMA
     Dosage: UNK
  6. PREDNISONE. [Concomitant]
     Active Substance: PREDNISONE
     Indication: DYSPNOEA
  7. MEPOLIZUMAB [Suspect]
     Active Substance: MEPOLIZUMAB
     Dosage: 100 MG, QD
     Route: 042
  8. FLOVENT DISKUS [Suspect]
     Active Substance: FLUTICASONE PROPIONATE
     Indication: ASTHMA
     Dosage: 500 UG, BID
  9. INSPIOLTO [Suspect]
     Active Substance: OLODATEROL HYDROCHLORIDE\TIOTROPIUM BROMIDE MONOHYDRATE
     Indication: PRODUCT USED FOR UNKNOWN INDICATION
     Dosage: 1 PUFF(S), QD
  10. PREDNISONE. [Concomitant]
     Active Substance: PREDNISONE
     Indication: ASTHMA
     Dosage: 18 MG, QD
  11. VENTOLIN [Suspect]
     Active Substance: ALBUTEROL SULFATE
     Indication: ASTHMA
     Dosage: UNK UNK, PRN
  12. MEPOLIZUMAB [Suspect]
     Active Substance: MEPOLIZUMAB
     Dosage: 100 UNK, UNK (MONTHLY)
  13. AZITHROMYCIN ANHYDROUS. [Concomitant]
     Active Substance: AZITHROMYCIN ANHYDROUS
     Indication: PRODUCT USED FOR UNKNOWN INDICATION
     Dosage: 500 MG, Z

REACTIONS (23)
  - Obstructive airways disorder [Unknown]
  - Lung disorder [Unknown]
  - Drug ineffective [Unknown]
  - Respiratory disorder [Unknown]
  - Lung hyperinflation [Unknown]
  - Heart rate increased [Unknown]
  - Malaise [Unknown]
  - Productive cough [Unknown]
  - Abdominal discomfort [Unknown]
  - Breath sounds abnormal [Unknown]
  - Dyspnoea [Recovering/Resolving]
  - Influenza [Unknown]
  - Infection [Unknown]
  - Headache [Unknown]
  - Flatulence [Unknown]
  - Hypertension [Unknown]
  - Wheezing [Unknown]
  - Asthma [Recovering/Resolving]
  - Blood count abnormal [Unknown]
  - Therapeutic product effect incomplete [Unknown]
  - Bronchiectasis [Unknown]
  - Snoring [Unknown]
  - Sputum discoloured [Unknown]
